FAERS Safety Report 16128134 (Version 2)
Quarter: 2019Q2

REPORT INFORMATION
  Report Type: Spontaneous
  Country: FR (occurrence: FR)
  Receive Date: 20190328
  Receipt Date: 20190403
  Transmission Date: 20190711
  Serious: Yes (Life-Threatening, Other)
  Sender: FDA-Public Use
  Company Number: FR-BRISTOL-MYERS SQUIBB COMPANY-BMS-2019-028025

PATIENT
  Age: 64 Year
  Sex: Female
  Weight: 80 kg

DRUGS (16)
  1. KARDEGIC [Suspect]
     Active Substance: ASPIRIN DL-LYSINE
     Indication: PROPHYLAXIS
     Dosage: 1 DOSAGE FORM, 1 DAY
     Route: 048
  2. TOUJEO [Suspect]
     Active Substance: INSULIN GLARGINE
     Indication: TYPE 2 DIABETES MELLITUS
     Dosage: 1 DOSAGE FORM, 1 DAY
     Route: 058
     Dates: start: 201710, end: 20180725
  3. INEGY [Suspect]
     Active Substance: EZETIMIBE\SIMVASTATIN
     Indication: DYSLIPIDAEMIA
     Dosage: 1 DOSAGE FORM, 1 DAY
     Route: 048
     Dates: end: 20180725
  4. COVERAM [Suspect]
     Active Substance: AMLODIPINE\PERINDOPRIL
     Indication: HYPERTENSION
     Dosage: 1 DOSAGE FORM, 1 DAY
     Route: 048
     Dates: end: 20180725
  5. CLOPIDOGREL [Suspect]
     Active Substance: CLOPIDOGREL BISULFATE
     Indication: PROPHYLAXIS
     Dosage: 75 MILLIGRAM, 1 DAY
     Route: 048
     Dates: end: 20180725
  6. EUPRESSYL                          /00631801/ [Suspect]
     Active Substance: URAPIDIL
     Indication: HYPERTENSION
     Dosage: 2 DOSAGE FORM, 1 DAY
     Route: 048
     Dates: end: 20180725
  7. REPAGLINIDE. [Suspect]
     Active Substance: REPAGLINIDE
     Indication: TYPE 2 DIABETES MELLITUS
     Dosage: 2 MILLIGRAM, 1 DAY
     Route: 048
     Dates: end: 20180725
  8. ELIQUIS [Suspect]
     Active Substance: APIXABAN
     Indication: CEREBROVASCULAR ACCIDENT PROPHYLAXIS
     Dosage: 2 DOSAGE FORM, 1 DAY
     Route: 048
     Dates: start: 2017, end: 20180725
  9. ALPRAZOLAM. [Suspect]
     Active Substance: ALPRAZOLAM
     Indication: PRODUCT USED FOR UNKNOWN INDICATION
     Dosage: 0.75 MILLIGRAM, 1 DAY
     Route: 048
     Dates: end: 20180725
  10. BISOPROLOL [Suspect]
     Active Substance: BISOPROLOL
     Indication: HYPERTENSION
     Dosage: 7.5 MILLIGRAM, 1 DAY
     Route: 048
     Dates: start: 201611, end: 20180725
  11. ALTIZIDE SPIRONOLACTONE RPG [Suspect]
     Active Substance: ALTHIAZIDE\SPIRONOLACTONE
     Indication: HYPERTENSION
     Dosage: 1 DOSAGE FORM, 1 DAY
     Route: 048
     Dates: end: 20180725
  12. METFORMIN HYDROCHLORIDE. [Suspect]
     Active Substance: METFORMIN HYDROCHLORIDE
     Indication: PRODUCT USED FOR UNKNOWN INDICATION
     Dosage: 3000 MILLIGRAM, 1 DAY
     Route: 048
     Dates: end: 20180725
  13. GABAPENTINE [Suspect]
     Active Substance: GABAPENTIN
     Indication: PRODUCT USED FOR UNKNOWN INDICATION
     Dosage: 1800 MILLIGRAM, 1 DAY
     Route: 048
     Dates: end: 20180725
  14. APIDRA [Suspect]
     Active Substance: INSULIN GLULISINE
     Indication: TYPE 2 DIABETES MELLITUS
     Dosage: UNK
     Route: 058
     Dates: end: 20180725
  15. ESOMEPRAZOLE. [Suspect]
     Active Substance: ESOMEPRAZOLE MAGNESIUM
     Indication: PRODUCT USED FOR UNKNOWN INDICATION
     Dosage: 40 MILLIGRAM, 1 DAY
     Route: 048
     Dates: end: 20180725
  16. RILMENIDINE [Suspect]
     Active Substance: RILMENIDINE
     Indication: HYPERTENSION
     Dosage: 2 MILLIGRAM, 1 DAY
     Route: 048
     Dates: end: 20180725

REACTIONS (6)
  - Hypoglycaemia [Recovered/Resolved]
  - Hyperkalaemia [Recovered/Resolved]
  - Acute kidney injury [Recovered/Resolved]
  - Prescribed underdose [Unknown]
  - Rhabdomyolysis [Recovered/Resolved]
  - Lactic acidosis [Recovered/Resolved]

NARRATIVE: CASE EVENT DATE: 20180725
